FAERS Safety Report 25368998 (Version 1)
Quarter: 2025Q2

REPORT INFORMATION
  Report Type: Spontaneous
  Country: TW (occurrence: None)
  Receive Date: 20250528
  Receipt Date: 20250528
  Transmission Date: 20250716
  Serious: Yes (Other)
  Sender: INCYTE
  Company Number: TW-002147023-NVSC2025TW084112

PATIENT
  Age: 13 Year

DRUGS (3)
  1. RUXOLITINIB [Suspect]
     Active Substance: RUXOLITINIB
     Indication: Chronic graft versus host disease
     Dosage: 5 MG, BID
     Route: 065
  2. CYCLOSPORINE [Suspect]
     Active Substance: CYCLOSPORINE
     Indication: Chronic graft versus host disease
     Route: 065
  3. SIROLIMUS [Suspect]
     Active Substance: SIROLIMUS
     Indication: Chronic graft versus host disease
     Route: 065

REACTIONS (5)
  - Fungal infection [Unknown]
  - Pancreatitis [Unknown]
  - Hypertriglyceridaemia [Unknown]
  - Herpes simplex [Unknown]
  - Therapy partial responder [Unknown]
